FAERS Safety Report 12490585 (Version 9)
Quarter: 2017Q1

REPORT INFORMATION
  Report Type: Spontaneous
  Country: CA (occurrence: CA)
  Receive Date: 20160622
  Receipt Date: 20170120
  Transmission Date: 20170428
  Serious: Yes (Other)
  Sender: FDA-Public Use
  Company Number: CA-ROCHE-1631123

PATIENT
  Age: 54 Year
  Sex: Female

DRUGS (15)
  1. XOLAIR [Suspect]
     Active Substance: OMALIZUMAB
     Route: 058
     Dates: start: 20160223
  2. XOLAIR [Suspect]
     Active Substance: OMALIZUMAB
     Route: 058
     Dates: start: 20140401
  3. XOLAIR [Suspect]
     Active Substance: OMALIZUMAB
     Route: 058
     Dates: start: 20161129
  4. XOLAIR [Suspect]
     Active Substance: OMALIZUMAB
     Dosage: DOSE INCREASED
     Route: 058
  5. XOLAIR [Suspect]
     Active Substance: OMALIZUMAB
     Route: 058
     Dates: start: 20160823
  6. NOVOTRIMEL DS [Concomitant]
     Route: 065
  7. XOLAIR [Suspect]
     Active Substance: OMALIZUMAB
     Route: 058
     Dates: start: 20160614
  8. XOLAIR [Suspect]
     Active Substance: OMALIZUMAB
     Route: 058
     Dates: start: 20161101
  9. XOLAIR [Suspect]
     Active Substance: OMALIZUMAB
     Route: 058
     Dates: start: 20161228
  10. XOLAIR [Suspect]
     Active Substance: OMALIZUMAB
     Route: 058
     Dates: start: 20160105
  11. XOLAIR [Suspect]
     Active Substance: OMALIZUMAB
     Indication: ASTHMA
     Route: 058
     Dates: start: 20100308
  12. XOLAIR [Suspect]
     Active Substance: OMALIZUMAB
     Route: 058
     Dates: start: 20160531
  13. XOLAIR [Suspect]
     Active Substance: OMALIZUMAB
     Route: 058
     Dates: start: 20161014
  14. NOVOTRIMEL DS [Concomitant]
     Indication: PRODUCT USED FOR UNKNOWN INDICATION
     Route: 065
  15. XOLAIR [Suspect]
     Active Substance: OMALIZUMAB
     Route: 058
     Dates: start: 20140107

REACTIONS (27)
  - Hypersensitivity [Unknown]
  - Dyspnoea [Unknown]
  - Seasonal allergy [Unknown]
  - Ligament sprain [Unknown]
  - Bronchitis [Unknown]
  - Lung infection [Unknown]
  - Sinus congestion [Unknown]
  - Pain [Unknown]
  - Weight decreased [Unknown]
  - Pyrexia [Unknown]
  - Nasopharyngitis [Unknown]
  - Chest pain [Unknown]
  - Asthma [Unknown]
  - Sputum discoloured [Unknown]
  - Headache [Unknown]
  - Influenza [Unknown]
  - Arthralgia [Unknown]
  - Rhinorrhoea [Unknown]
  - Fatigue [Unknown]
  - Blood pressure increased [Unknown]
  - Blood pressure diastolic decreased [Recovered/Resolved]
  - Respiratory tract congestion [Unknown]
  - Malaise [Unknown]
  - Productive cough [Unknown]
  - Nasal congestion [Unknown]
  - Oropharyngeal pain [Unknown]
  - Asthenia [Unknown]

NARRATIVE: CASE EVENT DATE: 20100308
